FAERS Safety Report 11322819 (Version 1)
Quarter: 2015Q3

REPORT INFORMATION
  Report Type: Spontaneous
  Country: US (occurrence: None)
  Receive Date: 20150729
  Receipt Date: 20150729
  Transmission Date: 20151125
  Serious: Yes (Disabling)
  Sender: FDA-Public Use
  Company Number: None

PATIENT
  Age: 32 Year
  Sex: Female

DRUGS (1)
  1. SUBLINGUAL IMMUNO THERAPY DROPS [Suspect]
     Active Substance: ALLERGENIC EXTRACTS
     Indication: ANTIALLERGIC THERAPY

REACTIONS (6)
  - Pain [None]
  - Depressed level of consciousness [None]
  - Abdominal discomfort [None]
  - Colitis microscopic [None]
  - Food allergy [None]
  - Fatigue [None]

NARRATIVE: CASE EVENT DATE: 20120707
